FAERS Safety Report 8378850-9 (Version None)
Quarter: 2012Q2

REPORT INFORMATION
  Report Type: 
  Country: None (occurrence: None)
  Receive Date: 20120523
  Receipt Date: 20120514
  Transmission Date: 20120825
  Serious: Yes (Hospitalization)
  Sender: FDA-Public Use
  Company Number: FR-BRISTOL-MYERS SQUIBB COMPANY-16586893

PATIENT
  Age: 55 Year
  Sex: Male
  Weight: 53 kg

DRUGS (6)
  1. FLUOROURACIL [Suspect]
     Indication: HEAD AND NECK CANCER
     Dosage: LAST DOSE:28AUG10.5/CYCLE.
     Dates: start: 20100712, end: 20100828
  2. CETUXIMAB [Suspect]
     Indication: HEAD AND NECK CANCER
     Dosage: LAST DOSE:01DEC2010
     Dates: start: 20101013
  3. CISPLATIN [Suspect]
     Indication: HEAD AND NECK CANCER
     Dosage: LAST DOSE:24AUG10. 1/CYCLE.
     Dates: start: 20100712
  4. METFORMIN HCL [Concomitant]
     Indication: TYPE 2 DIABETES MELLITUS
     Route: 048
  5. PLAVIX [Concomitant]
     Indication: THROMBOSIS PROPHYLAXIS
     Route: 058
  6. DOCETAXEL [Suspect]
     Indication: HEAD AND NECK CANCER
     Dosage: LAST DOSE:24AUG2010.1/CYCLE.
     Dates: start: 20100712, end: 20100824

REACTIONS (2)
  - APHAGIA [None]
  - MUCOSAL INFLAMMATION [None]
